FAERS Safety Report 19355365 (Version 3)
Quarter: 2025Q1

REPORT INFORMATION
  Report Type: Report from Study
  Country: US (occurrence: US)
  Receive Date: 20210531
  Receipt Date: 20250225
  Transmission Date: 20250409
  Serious: Yes (Hospitalization, Other)
  Sender: TAKEDA
  Company Number: US-TAKEDA-US202011912

PATIENT
  Sex: Female

DRUGS (4)
  1. HUMAN IMMUNOGLOBULIN G [Suspect]
     Active Substance: HUMAN IMMUNOGLOBULIN G
     Indication: Selective IgA immunodeficiency
     Dosage: 12 GRAM, 1/WEEK
     Dates: end: 2017
  2. HUMAN IMMUNOGLOBULIN G [Suspect]
     Active Substance: HUMAN IMMUNOGLOBULIN G
     Indication: Primary immunodeficiency syndrome
  3. HUMAN IMMUNOGLOBULIN G [Suspect]
     Active Substance: HUMAN IMMUNOGLOBULIN G
     Indication: Selective IgA immunodeficiency
  4. HUMAN IMMUNOGLOBULIN G [Suspect]
     Active Substance: HUMAN IMMUNOGLOBULIN G
     Indication: Primary immunodeficiency syndrome

REACTIONS (12)
  - Renal impairment [Recovering/Resolving]
  - Seizure [Recovering/Resolving]
  - Respiratory syncytial virus infection [Unknown]
  - Systemic lupus erythematosus [Unknown]
  - Breast cancer [Unknown]
  - Infection [Recovering/Resolving]
  - Herpes zoster [Recovering/Resolving]
  - Urinary tract infection [Recovering/Resolving]
  - Injection site mass [Recovering/Resolving]
  - Scar [Recovering/Resolving]
  - Infectious mononucleosis [Recovering/Resolving]
  - Inappropriate schedule of product administration [Unknown]

NARRATIVE: CASE EVENT DATE: 20190101
